FAERS Safety Report 11329636 (Version 1)
Quarter: 2015Q3

REPORT INFORMATION
  Report Type: Spontaneous
  Country: DE (occurrence: DE)
  Receive Date: 20150803
  Receipt Date: 20150803
  Transmission Date: 20151125
  Serious: Yes (Hospitalization)
  Sender: FDA-Public Use
  Company Number: DE-AUROBINDO-AUR-APL-2015-04613

PATIENT
  Sex: Male

DRUGS (1)
  1. BISOPROLOL 5 MG [Suspect]
     Active Substance: BISOPROLOL
     Indication: HYPERTENSION
     Dosage: 5 MG, UNK
     Route: 048
     Dates: start: 201210, end: 201502

REACTIONS (2)
  - Gait disturbance [Recovering/Resolving]
  - Monoparesis [Unknown]
